FAERS Safety Report 8779746 (Version 1)
Quarter: 2012Q4

REPORT INFORMATION
  Report Type: 
  Country: US (occurrence: US)
  Receive Date: 20120912
  Receipt Date: 20120912
  Transmission Date: 20130627
  Serious: No
  Sender: FDA-Public Use
  Company Number: US-VERTEX PHARMACEUTICAL INC.-AE-2012-005611

PATIENT

DRUGS (8)
  1. INCIVEK [Suspect]
     Indication: HEPATITIS C
     Route: 048
     Dates: start: 20120414
  2. RIBAVIRIN [Concomitant]
     Indication: HEPATITIS C
     Route: 048
     Dates: start: 20120414
  3. PEGASYS [Concomitant]
     Indication: HEPATITIS C
     Route: 058
     Dates: start: 20120414
  4. LEXAPRO [Concomitant]
     Route: 048
  5. AMBIEN [Concomitant]
     Route: 048
  6. LORAZEPAM [Concomitant]
     Route: 048
  7. RANITIDINE [Concomitant]
     Route: 048
  8. ELAVIL [Concomitant]
     Route: 048

REACTIONS (3)
  - Asthenia [Not Recovered/Not Resolved]
  - Rash maculo-papular [Recovered/Resolved]
  - Nausea [Not Recovered/Not Resolved]
